FAERS Safety Report 4964884-0 (Version None)
Quarter: 2006Q2

REPORT INFORMATION
  Report Type: 
  Country: None (occurrence: None)
  Receive Date: 20060403
  Receipt Date: 20060322
  Transmission Date: 20061013
  Serious: Yes (Hospitalization)
  Sender: FDA-Public Use
  Company Number: 200602965

PATIENT
  Age: 85 Year
  Sex: Female

DRUGS (8)
  1. GATIFLO                       (GATIFLOXACIN) [Suspect]
     Indication: POSTOPERATIVE CARE
     Dosage: 1 DROP QID EYE
     Dates: start: 20051227, end: 20060228
  2. GATIFLO                       (GATIFLOXACIN) [Suspect]
     Indication: PREOPERATIVE CARE
     Dosage: 1 DROP QID EYE
     Dates: start: 20051227, end: 20060228
  3. CALONAL [Concomitant]
  4. PRORENAL [Concomitant]
  5. CETRAXATE HYDROCHLORIDE [Concomitant]
  6. RIMATRIL [Concomitant]
  7. DORNER [Concomitant]
  8. PREDNISOLONE [Concomitant]

REACTIONS (1)
  - HYPOGLYCAEMIA [None]
